FAERS Safety Report 20907497 (Version 1)
Quarter: 2022Q2

REPORT INFORMATION
  Report Type: Report from Study
  Country: IT (occurrence: None)
  Receive Date: 20220602
  Receipt Date: 20220602
  Transmission Date: 20220721
  Serious: Yes (Death)
  Sender: FDA-Public Use
  Company Number: IT-Merck Healthcare KGaA-9325881

PATIENT
  Age: 83 Year
  Sex: Male
  Weight: 78 kg

DRUGS (4)
  1. AVELUMAB [Suspect]
     Active Substance: AVELUMAB
     Indication: Transitional cell carcinoma
     Dosage: 3 CYCLES
     Route: 042
     Dates: start: 20220323, end: 20220422
  2. TICLOPIDINE [Concomitant]
     Active Substance: TICLOPIDINE
     Indication: Ischaemic cardiomyopathy
     Route: 048
     Dates: start: 201407
  3. METOPROLOL [Concomitant]
     Active Substance: METOPROLOL
     Indication: Ischaemic cardiomyopathy
     Route: 048
     Dates: start: 201407
  4. VALSARTAN [Concomitant]
     Active Substance: VALSARTAN
     Indication: Ischaemic cardiomyopathy
     Route: 048
     Dates: start: 201407

REACTIONS (2)
  - Myocardial infarction [Fatal]
  - Cerebrovascular accident [Fatal]

NARRATIVE: CASE EVENT DATE: 20220422
